FAERS Safety Report 15158623 (Version 1)
Quarter: 2018Q3

REPORT INFORMATION
  Report Type: Spontaneous
  Country: US (occurrence: US)
  Receive Date: 20180718
  Receipt Date: 20180718
  Transmission Date: 20181010
  Serious: No
  Sender: FDA-Public Use
  Company Number: US-ASTRAZENECA-2018SE80304

PATIENT
  Sex: Female
  Weight: 58.1 kg

DRUGS (1)
  1. BYDUREON [Suspect]
     Active Substance: EXENATIDE
     Indication: DIABETES MELLITUS
     Route: 065

REACTIONS (7)
  - Blood glucose increased [Unknown]
  - Feeling abnormal [Unknown]
  - Asthenia [Unknown]
  - Confusional state [Unknown]
  - Anxiety [Unknown]
  - Crying [Unknown]
  - Malaise [Unknown]
